FAERS Safety Report 6766607-1 (Version None)
Quarter: 2010Q2

REPORT INFORMATION
  Report Type: 
  Country: None (occurrence: None)
  Receive Date: 20100609
  Receipt Date: 20100525
  Transmission Date: 20101027
  Serious: Yes (Other)
  Sender: FDA-Public Use
  Company Number: CIP10001155

PATIENT
  Age: 78 Year
  Sex: Female

DRUGS (3)
  1. BENET         (RISEDRONATE SODIUM) TABLET, [Suspect]
     Dosage: ORAL
     Route: 048
  2. ALENRONATE (ALENDRONATE SODIUM) [Suspect]
     Dosage: ORAL
     Route: 048
  3. ROLOXIFENE (ROLOXIFENE) [Concomitant]

REACTIONS (2)
  - FEMUR FRACTURE [None]
  - PATHOLOGICAL FRACTURE [None]
